FAERS Safety Report 10141578 (Version 1)
Quarter: 2014Q2

REPORT INFORMATION
  Report Type: Spontaneous
  Country: JP (occurrence: JP)
  Receive Date: 20140429
  Receipt Date: 20140429
  Transmission Date: 20141212
  Serious: Yes (Hospitalization)
  Sender: FDA-Public Use
  Company Number: JP-GLAXOSMITHKLINE-B0988802A

PATIENT
  Age: 50 Year
  Sex: Female

DRUGS (2)
  1. RELENZA [Suspect]
     Indication: PROPHYLAXIS
     Dosage: 10MG PER DAY
     Route: 055
     Dates: start: 20140402, end: 20140402
  2. CADUET [Concomitant]
     Indication: HYPERTENSION
     Route: 048

REACTIONS (1)
  - Status epilepticus [Not Recovered/Not Resolved]
